FAERS Safety Report 19416884 (Version 1)
Quarter: 2021Q2

REPORT INFORMATION
  Report Type: Spontaneous
  Country: US (occurrence: US)
  Receive Date: 20210614
  Receipt Date: 20210614
  Transmission Date: 20210717
  Serious: Yes (Other)
  Sender: FDA-Public Use
  Company Number: US-BIOMARINAP-US-2021-136986

PATIENT

DRUGS (1)
  1. PALYNZIQ [Suspect]
     Active Substance: PEGVALIASE-PQPZ
     Indication: PHENYLKETONURIA
     Route: 058

REACTIONS (6)
  - Presyncope [Unknown]
  - Dizziness [Unknown]
  - Swelling face [Unknown]
  - Anaphylactic reaction [Unknown]
  - Flushing [Unknown]
  - Vomiting [Unknown]
